FAERS Safety Report 5512337-3 (Version None)
Quarter: 2007Q4

REPORT INFORMATION
  Report Type: 
  Country: None (occurrence: None)
  Receive Date: 20071112
  Receipt Date: 20071101
  Transmission Date: 20080405
  Serious: Yes (Other)
  Sender: FDA-Public Use
  Company Number: CH-JNJFOC-20071007130

PATIENT
  Sex: Male

DRUGS (7)
  1. REMINYL [Suspect]
  2. REMINYL [Suspect]
     Indication: DEMENTIA
  3. LOSARTAN POTASSIUM [Concomitant]
     Indication: HYPERTENSION
     Route: 048
  4. SIMVASTATIN [Concomitant]
     Indication: HYPERCHOLESTEROLAEMIA
     Route: 048
  5. ASPIRIN [Concomitant]
     Indication: CARDIAC DISORDER
     Route: 048
  6. CORVATON [Concomitant]
     Indication: CARDIAC DISORDER
     Route: 048
  7. SERTRALINUM [Concomitant]
     Indication: DEPRESSION
     Route: 048

REACTIONS (2)
  - EUPHORIC MOOD [None]
  - HALLUCINATION, AUDITORY [None]
